FAERS Safety Report 8198324-8 (Version None)
Quarter: 2012Q1

REPORT INFORMATION
  Report Type: 
  Country: None (occurrence: None)
  Receive Date: 20120309
  Receipt Date: 20120301
  Transmission Date: 20120608
  Serious: Yes (Other)
  Sender: FDA-Public Use
  Company Number: PHEH2010US03864

PATIENT
  Sex: Female
  Weight: 62.585 kg

DRUGS (16)
  1. PERIDEX [Concomitant]
  2. ASPIRIN [Concomitant]
  3. SIMVASTATIN [Concomitant]
     Dosage: 20 MG, UNK
  4. METFORMIN HCL [Concomitant]
     Dosage: 500 MG, UNK
  5. MULTI-VITAMINS [Concomitant]
  6. FEMARA [Concomitant]
     Dosage: 2.5 MG, UNK
  7. ZOCOR [Concomitant]
  8. AMARYL [Concomitant]
     Dosage: 2 MG, UNK
  9. ANTICOAGULANTS [Concomitant]
  10. CLINDAMYCIN [Concomitant]
  11. SENNA [Concomitant]
  12. PLAVIX [Concomitant]
     Dosage: 75 MG, UNK
  13. LOPRESSOR [Concomitant]
     Dosage: 50 MG, UNK
  14. ZOMETA [Suspect]
     Indication: METASTASES TO BONE
     Route: 042
  15. COLACE [Concomitant]
  16. DARVOCET-N 50 [Concomitant]

REACTIONS (55)
  - SWELLING FACE [None]
  - HYPERTENSION [None]
  - LIVER DISORDER [None]
  - HAEMOPTYSIS [None]
  - OSTEOARTHRITIS [None]
  - OSTEONECROSIS OF JAW [None]
  - ILIUM FRACTURE [None]
  - HAEMATEMESIS [None]
  - OSTEOPOROSIS [None]
  - LEFT ATRIAL DILATATION [None]
  - DYSLIPIDAEMIA [None]
  - INJURY [None]
  - DEFORMITY [None]
  - GINGIVAL PAIN [None]
  - INTERVERTEBRAL DISC DEGENERATION [None]
  - TRICUSPID VALVE INCOMPETENCE [None]
  - CHEST PAIN [None]
  - ULCER [None]
  - XEROSIS [None]
  - DERMATITIS CONTACT [None]
  - INFECTION [None]
  - SPINAL OSTEOARTHRITIS [None]
  - CELLULITIS [None]
  - HAEMORRHOIDS [None]
  - ARTERIOSCLEROSIS [None]
  - PULMONARY VALVE INCOMPETENCE [None]
  - THROMBOCYTOPENIA [None]
  - PAIN [None]
  - PLEURAL EFFUSION [None]
  - GASTROINTESTINAL HAEMORRHAGE [None]
  - GASTRITIS [None]
  - BACK PAIN [None]
  - PHYSICAL DISABILITY [None]
  - ORAL PAIN [None]
  - NEOPLASM PROGRESSION [None]
  - VULVOVAGINAL PAIN [None]
  - CHOLELITHIASIS [None]
  - HIATUS HERNIA [None]
  - ASTHMA [None]
  - MITRAL VALVE INCOMPETENCE [None]
  - ANAEMIA [None]
  - GASTROOESOPHAGEAL REFLUX DISEASE [None]
  - CORONARY ARTERY DISEASE [None]
  - BLOOD CHOLESTEROL INCREASED [None]
  - EMOTIONAL DISTRESS [None]
  - STRESS [None]
  - PURULENT DISCHARGE [None]
  - PINGUECULA [None]
  - ATELECTASIS [None]
  - ANGINA PECTORIS [None]
  - NEOPLASM MALIGNANT [None]
  - OEDEMA PERIPHERAL [None]
  - DIVERTICULUM [None]
  - URINARY TRACT INFECTION [None]
  - DYSPNOEA [None]
